FAERS Safety Report 5865013-1 (Version None)
Quarter: 2008Q3

REPORT INFORMATION
  Report Type: 
  Country: None (occurrence: None)
  Receive Date: 20080829
  Receipt Date: 20080822
  Transmission Date: 20090109
  Serious: Yes (Hospitalization)
  Sender: FDA-Public Use
  Company Number: A0688722A

PATIENT
  Age: 55 Year
  Sex: Male
  Weight: 113.6 kg

DRUGS (8)
  1. AVANDIA [Suspect]
     Dosage: 8MG PER DAY
     Route: 048
     Dates: start: 20000101, end: 20051130
  2. HUMALOG [Concomitant]
     Dates: start: 19900101
  3. INSULIN [Concomitant]
     Dates: start: 19900101
  4. ZOCOR [Concomitant]
     Dates: start: 19950101
  5. NITROGLYCERIN [Concomitant]
     Dates: start: 19900101
  6. NIASPAN [Concomitant]
  7. FLOMAX [Concomitant]
  8. POTASSIUM CHLORIDE [Concomitant]

REACTIONS (4)
  - CARDIAC FAILURE CONGESTIVE [None]
  - INJURY [None]
  - MYOCARDIAL INFARCTION [None]
  - PAIN [None]
